FAERS Safety Report 8985783 (Version 1)
Quarter: 2012Q4

REPORT INFORMATION
  Report Type: 
  Country: JP (occurrence: JP)
  Receive Date: 20121226
  Receipt Date: 20121226
  Transmission Date: 20130627
  Serious: Yes (Other)
  Sender: FDA-Public Use
  Company Number: PHHY2012JP118079

PATIENT
  Age: 45 Year
  Sex: Male

DRUGS (6)
  1. TEMOZOLOMIDE [Suspect]
     Indication: GLIOBLASTOMA
     Dosage: 75 mg/m2, UNK
  2. TEMOZOLOMIDE [Suspect]
     Dosage: 100 mg/m2, UNK
  3. TEMOZOLOMIDE [Suspect]
     Dosage: 150 mg/m2, UNK
  4. TEMOZOLOMIDE [Suspect]
     Dosage: 200 mg/m2, UNK
  5. PREDNISOLONE [Suspect]
     Indication: BRAIN OEDEMA
     Dosage: 15 mg, UNK
  6. CHEMORADIOTHERAPY [Concomitant]
     Indication: GLIOBLASTOMA
     Dosage: 60 Gy/30 fr

REACTIONS (8)
  - Cytomegalovirus infection [Recovered/Resolved]
  - Pyrexia [Recovered/Resolved]
  - Transaminases increased [Recovered/Resolved]
  - Pneumonia [Recovered/Resolved]
  - Cytomegalovirus hepatitis [Recovered/Resolved]
  - Malignant neoplasm progression [Not Recovered/Not Resolved]
  - Lymphopenia [Recovered/Resolved]
  - Nausea [Recovered/Resolved]
